FAERS Safety Report 19326880 (Version 2)
Quarter: 2021Q2

REPORT INFORMATION
  Report Type: Spontaneous
  Country: US (occurrence: US)
  Receive Date: 20210528
  Receipt Date: 20210625
  Transmission Date: 20210717
  Serious: No
  Sender: FDA-Public Use
  Company Number: US-KYOWAKIRIN-2021BKK008185

PATIENT

DRUGS (1)
  1. CRYSVITA [Suspect]
     Active Substance: BUROSUMAB-TWZA
     Indication: HEREDITARY HYPOPHOSPHATAEMIC RICKETS
     Dosage: 60 MG, 1X/4 WEEKS
     Route: 058
     Dates: start: 20180517

REACTIONS (3)
  - Hyperaesthesia teeth [Unknown]
  - Dental caries [Unknown]
  - Alopecia [Unknown]

NARRATIVE: CASE EVENT DATE: 2020
